FAERS Safety Report 25119290 (Version 1)
Quarter: 2025Q1

REPORT INFORMATION
  Report Type: Spontaneous
  Country: US (occurrence: US)
  Receive Date: 20250325
  Receipt Date: 20250325
  Transmission Date: 20250408
  Serious: No
  Sender: AYTU BIOSCIENCE
  Company Number: US-AYTU BIOPHARMA, INC.-2024AYT000057

PATIENT
  Age: 33 Year
  Sex: Female

DRUGS (1)
  1. ADZENYS XR-ODT [Suspect]
     Active Substance: AMPHETAMINE
     Indication: Product used for unknown indication
     Route: 065

REACTIONS (1)
  - Drug effect less than expected [Unknown]
